FAERS Safety Report 8492105-3 (Version None)
Quarter: 2012Q3

REPORT INFORMATION
  Report Type: 
  Country: None (occurrence: None)
  Receive Date: 20120706
  Receipt Date: 20120626
  Transmission Date: 20120928
  Serious: Yes (Disabling)
  Sender: FDA-Public Use
  Company Number: US-PFIZER INC-2012160319

PATIENT
  Sex: Female

DRUGS (1)
  1. MS CONTIN [Suspect]
     Dosage: UNK
     Route: 065

REACTIONS (1)
  - DEAFNESS [None]
